FAERS Safety Report 21778188 (Version 2)
Quarter: 2022Q4

REPORT INFORMATION
  Report Type: Report from Study
  Country: US (occurrence: US)
  Receive Date: 20221226
  Receipt Date: 20221227
  Transmission Date: 20230112
  Serious: No
  Sender: FDA-Public Use
  Company Number: US-ABBVIE-4203288

PATIENT
  Sex: Female

DRUGS (1)
  1. RINVOQ [Suspect]
     Active Substance: UPADACITINIB
     Indication: Rheumatoid arthritis
     Route: 048

REACTIONS (9)
  - Neck pain [Recovering/Resolving]
  - Fatigue [Unknown]
  - Bone disorder [Unknown]
  - Hypoaesthesia [Unknown]
  - Asthenia [Recovering/Resolving]
  - Pain in extremity [Unknown]
  - Nodule [Unknown]
  - Somnolence [Unknown]
  - Back pain [Unknown]
